FAERS Safety Report 4819375-4 (Version None)
Quarter: 2005Q4

REPORT INFORMATION
  Report Type: 
  Country: None (occurrence: None)
  Receive Date: 20051031
  Receipt Date: 20050729
  Transmission Date: 20060501
  Serious: No
  Sender: FDA-Public Use
  Company Number: 2005PV000708

PATIENT
  Age: 66 Year
  Sex: Female
  Weight: 127.0072 kg

DRUGS (14)
  1. SYMLIN [Suspect]
     Indication: DIABETES MELLITUS NON-INSULIN-DEPENDENT
     Dosage: 120 MCG;TID;SC, 60 MCG;TID;SC
     Route: 058
     Dates: end: 20050701
  2. SYMLIN [Suspect]
     Indication: DIABETES MELLITUS NON-INSULIN-DEPENDENT
     Dosage: 120 MCG;TID;SC, 60 MCG;TID;SC
     Route: 058
     Dates: start: 20050701
  3. HUMALOG MIX 75/25 [Concomitant]
  4. PROZAC [Concomitant]
  5. NEXIUM [Concomitant]
  6. AVANDIA [Concomitant]
  7. WELLBUTRIN [Concomitant]
  8. CAPTOPRIL [Concomitant]
  9. LIPITOR [Concomitant]
  10. COPRIL [Concomitant]
  11. ZETIA [Concomitant]
  12. ASPIRIN [Concomitant]
  13. LASIX [Concomitant]
  14. CALCIUM CHLORIDE [Concomitant]

REACTIONS (4)
  - BLOOD GLUCOSE INCREASED [None]
  - DECREASED APPETITE [None]
  - DRUG INEFFECTIVE [None]
  - TREMOR [None]
